FAERS Safety Report 6576963-5 (Version None)
Quarter: 2010Q1

REPORT INFORMATION
  Report Type: 
  Country: None (occurrence: None)
  Receive Date: 20100210
  Receipt Date: 20100201
  Transmission Date: 20100710
  Serious: Yes (Death)
  Sender: FDA-Public Use
  Company Number: US-PFIZER INC-2009313056

PATIENT
  Sex: Male

DRUGS (14)
  1. SUTENT [Suspect]
     Dosage: 50 MG, UNK
  2. PLAVIX [Concomitant]
     Dosage: 75 MG, UNK
  3. LIPITOR [Concomitant]
     Dosage: 20 MG, PER DAY
  4. VERAPAMIL [Concomitant]
     Dosage: 120 MG, 1X/DAY
  5. VALSARTAN [Concomitant]
     Dosage: 160 MG, 1X/DAY
  6. DIGOXIN [Concomitant]
     Dosage: 125 MCG  A DAY
  7. NEXIUM [Concomitant]
     Dosage: 40 MG, A DAY
  8. COREG [Concomitant]
     Dosage: 12.5 MG, 2X/DAY
  9. CUMADIN [Concomitant]
     Dosage: 5 MG EVERY OTEHR DAY
  10. NIASPAN [Concomitant]
     Dosage: 500 MG, 2X/DAY
  11. TEMAZEPAM [Concomitant]
     Dosage: 30 MG, AS NEEDED
  12. TAMSULOSIN HYDROCHLORIDE [Concomitant]
     Dosage: 0.4 ONCE A DAY
  13. XANAX [Concomitant]
     Dosage: AS NEEDED
  14. PROSCAR [Concomitant]

REACTIONS (1)
  - HEPATIC FAILURE [None]
